FAERS Safety Report 15295326 (Version 1)
Quarter: 2018Q3

REPORT INFORMATION
  Report Type: Spontaneous
  Country: US (occurrence: US)
  Receive Date: 20180807
  Receipt Date: 20180807
  Transmission Date: 20181010
  Serious: Yes (Disabling)
  Sender: FDA-Public Use
  Company Number: None

PATIENT
  Sex: Male

DRUGS (1)
  1. L?THYROXINE TABS 175MCG [Suspect]
     Active Substance: LEVOTHYROXINE
     Indication: AUTOIMMUNE THYROIDITIS
     Dosage: ?          QUANTITY:1 TABLET(S);?
     Route: 048
     Dates: start: 20170115, end: 20171017

REACTIONS (4)
  - Product substitution issue [None]
  - Drug ineffective [None]
  - Blood thyroid stimulating hormone increased [None]
  - Product quality issue [None]

NARRATIVE: CASE EVENT DATE: 20171017
